FAERS Safety Report 8449793 (Version 4)
Quarter: 2013Q2

REPORT INFORMATION
  Report Type: Spontaneous
  Country: US (occurrence: US)
  Receive Date: 20120309
  Receipt Date: 20130627
  Transmission Date: 20140414
  Serious: Yes (Other)
  Sender: FDA-Public Use
  Company Number: US-PFIZER INC-2012059706

PATIENT
  Sex: Female

DRUGS (3)
  1. NEURONTIN [Suspect]
     Dosage: UNK
  2. NORVASC [Suspect]
     Dosage: UNK
  3. GLUCOTROL [Suspect]
     Dosage: UNK

REACTIONS (6)
  - Hypertension [Unknown]
  - Cataract [Unknown]
  - Headache [Unknown]
  - Drug intolerance [Unknown]
  - Fibromyalgia [Unknown]
  - Blood glucose decreased [Unknown]
